FAERS Safety Report 18987574 (Version 1)
Quarter: 2021Q1

REPORT INFORMATION
  Report Type: Spontaneous
  Country: CN (occurrence: CN)
  Receive Date: 20210309
  Receipt Date: 20210309
  Transmission Date: 20210420
  Serious: Yes (Other)
  Sender: FDA-Public Use
  Company Number: CN-ASTRAZENECA-2021A098870

PATIENT
  Age: 24107 Day
  Sex: Female
  Weight: 53 kg

DRUGS (3)
  1. DURVALUMAB. [Suspect]
     Active Substance: DURVALUMAB
     Indication: IMMUNE ENHANCEMENT THERAPY
     Dosage: 500.0 MG, ONCE EVERY 0 DAYS, DOSE OF IRINOTECAN 70MG D1, 8 PLUS NEDAPLATIN 90MG D1^ CHEMOTHERAPY
     Route: 041
     Dates: start: 20201217, end: 20201217
  2. IRINOTECAN HYDROCHLORIDE. [Suspect]
     Active Substance: IRINOTECAN HYDROCHLORIDE
     Indication: NEOPLASM MALIGNANT
     Dosage: 70.0 MG, ONCE EVERY 0 DAYS, DOSE OF IRINOTECAN 70MG D1, 8 PLUS NEDAPLATIN 90MG D1 CHEMOTHERAPY
     Route: 065
     Dates: start: 20201218, end: 20201218
  3. NEDAPLATIN [Suspect]
     Active Substance: NEDAPLATIN
     Indication: NEOPLASM MALIGNANT
     Dosage: 90.0 MG, ONCE EVERY 0 DAYS, DOSE OF IRINOTECAN 70MG D1, 8 PLUS NEDAPLATIN 90MG D1^ CHEMOTHERAPY
     Route: 065
     Dates: start: 20201218, end: 20201218

REACTIONS (1)
  - Myelosuppression [Recovering/Resolving]

NARRATIVE: CASE EVENT DATE: 20210108
